FAERS Safety Report 22652361 (Version 1)
Quarter: 2023Q2

REPORT INFORMATION
  Report Type: Spontaneous
  Country: US (occurrence: US)
  Receive Date: 20230628
  Receipt Date: 20230628
  Transmission Date: 20230722
  Serious: No
  Sender: FDA-Public Use
  Company Number: US-SA-SAC20230627001267

PATIENT
  Age: 60 Year
  Sex: Female

DRUGS (1)
  1. TERIFLUNOMIDE [Suspect]
     Active Substance: TERIFLUNOMIDE
     Indication: Multiple sclerosis
     Dosage: 7 MG , QD
     Route: 048
     Dates: start: 202201, end: 202306

REACTIONS (2)
  - Peripheral swelling [Unknown]
  - Skin disorder [Unknown]

NARRATIVE: CASE EVENT DATE: 20230601
